FAERS Safety Report 7028282-0 (Version None)
Quarter: 2010Q4

REPORT INFORMATION
  Report Type: 
  Country: None (occurrence: None)
  Receive Date: 20101005
  Receipt Date: 20100923
  Transmission Date: 20110411
  Serious: Yes (Hospitalization)
  Sender: FDA-Public Use
  Company Number: FR-PFIZER INC-2010120672

PATIENT
  Age: 19 Year
  Sex: Male

DRUGS (2)
  1. XANAX [Suspect]
     Dosage: 0.25 MG, 3X/DAY
     Route: 048
     Dates: start: 20090201, end: 20090201
  2. EFFEXOR [Suspect]
     Dosage: 75 MG, 1X/DAY
     Route: 048
     Dates: start: 20090201, end: 20090201

REACTIONS (1)
  - INTERSTITIAL LUNG DISEASE [None]
